FAERS Safety Report 9477576 (Version 2)
Quarter: 2013Q3

REPORT INFORMATION
  Report Type: Spontaneous
  Country: US (occurrence: US)
  Receive Date: 20130827
  Receipt Date: 20130916
  Transmission Date: 20140515
  Serious: Yes (Other)
  Sender: FDA-Public Use
  Company Number: US-AMGEN-USASP2013058557

PATIENT
  Age: 70 Year
  Sex: Female
  Weight: 53.52 kg

DRUGS (15)
  1. PROLIA [Suspect]
     Indication: OSTEOPOROSIS
     Dosage: 60 MG, UNK
     Route: 058
     Dates: start: 20130710
  2. METHOTREXATE [Concomitant]
     Dosage: 2.5 MG, QWK
     Route: 048
     Dates: start: 20130709
  3. AMLODIPINE [Concomitant]
     Indication: HYPERTENSION
     Dosage: 10 MG, QD
     Route: 048
  4. CYMBALTA [Concomitant]
     Dosage: 60 MG, QD
     Route: 048
  5. SYMBICORT [Concomitant]
     Route: 045
  6. ALBUTEROL                          /00139501/ [Concomitant]
     Route: 045
  7. ESTRADIOL [Concomitant]
     Dosage: 1 MG, UNK
     Route: 065
  8. PROTONIX [Concomitant]
     Route: 048
  9. FOLIC ACID [Concomitant]
     Dosage: 1 MG, QD
     Route: 048
     Dates: start: 20130709
  10. LISINOPRIL [Concomitant]
     Dosage: 20 MG, UNK
     Route: 065
  11. CLONAZEPAM [Concomitant]
     Dosage: 0.5 MG, UNK
     Route: 065
  12. LEVOTHYROXINE [Concomitant]
     Dosage: 75 MUG, UNK
     Route: 048
  13. SINGULAIR [Concomitant]
     Route: 048
  14. CALCIUM [Concomitant]
     Route: 065
  15. VITAMIN D                          /00107901/ [Concomitant]
     Route: 065

REACTIONS (36)
  - Convulsion [Not Recovered/Not Resolved]
  - Tetany [Unknown]
  - Blindness [Unknown]
  - Colitis ulcerative [Unknown]
  - Haemorrhage [Unknown]
  - Contusion [Unknown]
  - Myalgia [Unknown]
  - Muscle spasms [Not Recovered/Not Resolved]
  - Fatigue [Unknown]
  - Dry eye [Unknown]
  - Palpitations [Unknown]
  - Dyspnoea [Unknown]
  - Cough [Unknown]
  - Dysphagia [Unknown]
  - Muscular weakness [Unknown]
  - Swelling [Unknown]
  - Photosensitivity reaction [Unknown]
  - Raynaud^s phenomenon [Unknown]
  - Alopecia [Unknown]
  - Headache [Unknown]
  - Dizziness [Unknown]
  - Memory impairment [Unknown]
  - Hypoaesthesia [Unknown]
  - Paraesthesia [Unknown]
  - Anxiety [Unknown]
  - Thirst [Unknown]
  - Tremor [Unknown]
  - Joint swelling [Recovered/Resolved]
  - Ocular hyperaemia [Unknown]
  - Hearing impaired [Unknown]
  - Abdominal pain [Unknown]
  - Sleep disorder [Unknown]
  - Constipation [Unknown]
  - Arthralgia [Unknown]
  - Osteoarthritis [Unknown]
  - Pain in extremity [Unknown]
